FAERS Safety Report 7640169-9 (Version None)
Quarter: 2011Q3

REPORT INFORMATION
  Report Type: 
  Country: None (occurrence: None)
  Receive Date: 20110728
  Receipt Date: 20110701
  Transmission Date: 20111222
  Serious: No
  Sender: FDA-Public Use
  Company Number: US-BAYER-2011-058934

PATIENT
  Age: 61 Year
  Sex: Female
  Weight: 136 kg

DRUGS (10)
  1. COZAAR [Concomitant]
  2. ACIPHEX [Concomitant]
  3. ASPIRIN [Concomitant]
  4. FUROSEMIDE [Concomitant]
  5. REGLAN [Concomitant]
  6. BENADRYL [Concomitant]
  7. TYLENOL [CHLORPHENAM MAL,DEXTROMET HBR,PARACET,PSEUDOEPH HCL] [Concomitant]
  8. ALEVE (CAPLET) [Suspect]
     Dosage: 1 DF, ONCE
     Dates: start: 20110701, end: 20110701
  9. KLOR-CON [Concomitant]
  10. ALEVE (CAPLET) [Suspect]
     Indication: ANALGESIC THERAPY
     Dosage: 1 DF, ONCE
     Dates: start: 20110630, end: 20110630

REACTIONS (1)
  - DYSPEPSIA [None]
